FAERS Safety Report 14530424 (Version 1)
Quarter: 2018Q1

REPORT INFORMATION
  Report Type: Spontaneous
  Country: US (occurrence: US)
  Receive Date: 20180214
  Receipt Date: 20180214
  Transmission Date: 20180509
  Serious: No
  Sender: FDA-Public Use
  Company Number: US-GLAXOSMITHKLINE-US2018GSK024494

PATIENT
  Sex: Male

DRUGS (1)
  1. NICODERM CQ [Suspect]
     Active Substance: NICOTINE
     Indication: SMOKING CESSATION THERAPY
     Dosage: 21 MG, UNK
     Dates: start: 19990101, end: 19990105

REACTIONS (3)
  - Application site pain [Recovered/Resolved with Sequelae]
  - Application site reaction [Unknown]
  - Application site vesicles [Recovered/Resolved with Sequelae]

NARRATIVE: CASE EVENT DATE: 19990105
